FAERS Safety Report 10588611 (Version 2)
Quarter: 2014Q4

REPORT INFORMATION
  Report Type: Report from Study
  Country: BR (occurrence: BR)
  Receive Date: 20141117
  Receipt Date: 20141117
  Transmission Date: 20150529
  Serious: Yes (Other)
  Sender: FDA-Public Use
  Company Number: BR-ABBVIE-14P-020-1280824-00

PATIENT
  Age: 61 Year
  Sex: Male
  Weight: 86 kg

DRUGS (5)
  1. PREDSIM [Concomitant]
     Active Substance: PREDNISOLONE
     Indication: PAIN
     Route: 048
  2. GLIMEPIRIDE/METFORMIN (MERITOR) [Concomitant]
     Indication: DIABETES MELLITUS
     Route: 048
     Dates: start: 201409
  3. METFORMIN (GLIFAGE) [Concomitant]
     Indication: DIABETES MELLITUS
     Route: 048
     Dates: start: 201409
  4. HUMIRA [Suspect]
     Active Substance: ADALIMUMAB
     Indication: PSORIATIC ARTHROPATHY
     Route: 058
     Dates: start: 201406
  5. METFORMIN HYDROCHLORIDE. [Concomitant]
     Active Substance: METFORMIN HYDROCHLORIDE
     Indication: DIABETES MELLITUS
     Route: 048
     Dates: start: 201408

REACTIONS (2)
  - Arthritis [Unknown]
  - Diabetes mellitus [Not Recovered/Not Resolved]

NARRATIVE: CASE EVENT DATE: 201409
